FAERS Safety Report 6500168-7 (Version None)
Quarter: 2009Q4

REPORT INFORMATION
  Report Type: 
  Country: None (occurrence: None)
  Receive Date: 20091216
  Receipt Date: 20091204
  Transmission Date: 20100525
  Serious: Yes (Other)
  Sender: FDA-Public Use
  Company Number: FR-PFIZER INC-2009307752

PATIENT
  Sex: Female

DRUGS (1)
  1. AROMASINE [Suspect]
     Dosage: UNK

REACTIONS (2)
  - RETINAL DETACHMENT [None]
  - VISUAL IMPAIRMENT [None]
